FAERS Safety Report 8120977-0 (Version None)
Quarter: 2012Q1

REPORT INFORMATION
  Report Type: 
  Country: None (occurrence: None)
  Receive Date: 20120203
  Receipt Date: 20120127
  Transmission Date: 20120608
  Serious: Yes (Disabling)
  Sender: FDA-Public Use
  Company Number: 2012SP005291

PATIENT
  Age: 37 Year
  Sex: Female

DRUGS (8)
  1. OMEPRAZOLE [Concomitant]
  2. BACTRIM [Concomitant]
  3. KLONOPIN [Concomitant]
  4. PRILOSEC [Concomitant]
  5. VITAMIN B COMPLEX CAP [Concomitant]
  6. NUVARING [Suspect]
     Indication: CONTRACEPTION
     Dosage: QM;VAG
     Route: 067
     Dates: start: 20090901
  7. PAXIL [Concomitant]
  8. ASCORBIC ACID [Concomitant]

REACTIONS (7)
  - HEADACHE [None]
  - PUPILLARY REFLEX IMPAIRED [None]
  - PAIN [None]
  - GLARE [None]
  - BLINDNESS UNILATERAL [None]
  - OPTIC NEURITIS [None]
  - INTERVERTEBRAL DISC DEGENERATION [None]
